FAERS Safety Report 20230190 (Version 1)
Quarter: 2021Q4

REPORT INFORMATION
  Report Type: Report from Study
  Country: CH (occurrence: CH)
  Receive Date: 20211226
  Receipt Date: 20211226
  Transmission Date: 20220303
  Serious: Yes (Other)
  Sender: FDA-Public Use
  Company Number: CH-ABBVIE-21K-151-4206290-00

PATIENT
  Sex: Male

DRUGS (5)
  1. CARBIDOPA\LEVODOPA [Suspect]
     Active Substance: CARBIDOPA\LEVODOPA
     Indication: Parkinson^s disease
     Dosage: 16 HOURS THERAPY
     Route: 050
     Dates: start: 20211104, end: 20211105
  2. CARBIDOPA\LEVODOPA [Suspect]
     Active Substance: CARBIDOPA\LEVODOPA
     Dosage: MD: 0.5 ML, CRD: 1.5 ML/H, ED: 0.5 ML?16 HOURS THERAPY
     Route: 050
     Dates: start: 20211105, end: 20211107
  3. CARBIDOPA\LEVODOPA [Suspect]
     Active Substance: CARBIDOPA\LEVODOPA
     Dosage: MD: 3.0 ML, CRD: 2.9 ML/H, ED: 1.5 ML?16 HOURS THERAPY
     Route: 050
     Dates: start: 20211107, end: 20211108
  4. CARBIDOPA\LEVODOPA [Suspect]
     Active Substance: CARBIDOPA\LEVODOPA
     Dosage: MD: 3.0 ML, CRD: 3.3 ML/H, ED: 1.5 ML
     Route: 050
     Dates: start: 20211108, end: 20211115
  5. CARBIDOPA\LEVODOPA [Suspect]
     Active Substance: CARBIDOPA\LEVODOPA
     Dosage: MD: 2.0 ML, CRD: 3.0 ML/H, DOSE AFTERNOON: 2.5ML; ED: 1.0?16H THERAPY
     Route: 050
     Dates: start: 20211115

REACTIONS (2)
  - Rehabilitation therapy [Not Recovered/Not Resolved]
  - General physical health deterioration [Not Recovered/Not Resolved]

NARRATIVE: CASE EVENT DATE: 20210101
